FAERS Safety Report 9133422 (Version 2)
Quarter: 2013Q1

REPORT INFORMATION
  Report Type: Spontaneous
  Country: FR (occurrence: FR)
  Receive Date: 20130301
  Receipt Date: 20130319
  Transmission Date: 20140127
  Serious: Yes (Life-Threatening, Hospitalization)
  Sender: FDA-Public Use
  Company Number: FR-BAXTER-2013BAX006908

PATIENT
  Age: 14 Year
  Sex: Female

DRUGS (6)
  1. ENDOXAN 2000 MG, LYOPHILISAT POUR SOLUTION INJECTABLE [Suspect]
     Indication: EWING^S SARCOMA
     Route: 042
     Dates: start: 20121214, end: 20121216
  2. ETOPOSIDE [Suspect]
     Indication: EWING^S SARCOMA
     Route: 042
     Dates: start: 20121214, end: 20121216
  3. DOXORUBICINE [Suspect]
     Indication: EWING^S SARCOMA
     Route: 042
     Dates: start: 20121214, end: 20121216
  4. VINCRISTINE [Suspect]
     Indication: EWING^S SARCOMA
     Route: 042
     Dates: start: 20121214, end: 20121216
  5. TEMOZOLOMIDE [Concomitant]
     Indication: PRODUCT USED FOR UNKNOWN INDICATION
     Route: 065
  6. IRINOTECAN [Concomitant]
     Indication: PRODUCT USED FOR UNKNOWN INDICATION
     Route: 065

REACTIONS (2)
  - Febrile bone marrow aplasia [Recovered/Resolved]
  - Disseminated intravascular coagulation [Recovered/Resolved]
